FAERS Safety Report 6127447-X (Version None)
Quarter: 2009Q1

REPORT INFORMATION
  Report Type: 
  Country: None (occurrence: None)
  Receive Date: 20090323
  Receipt Date: 20090312
  Transmission Date: 20090719
  Serious: Yes (Hospitalization)
  Sender: FDA-Public Use
  Company Number: GB-RANBAXY-2009RR-22696

PATIENT
  Age: 50 Year
  Sex: Male

DRUGS (2)
  1. AMLODIPINE [Suspect]
     Dosage: 10 MG, UNK
  2. ATENOLOL [Suspect]
     Indication: ANGINA PECTORIS
     Dosage: 50 MG, QD
     Route: 048

REACTIONS (9)
  - ATRIOVENTRICULAR BLOCK COMPLETE [None]
  - BRADYCARDIA [None]
  - CARDIOGENIC SHOCK [None]
  - DRUG TOXICITY [None]
  - HYPERGLYCAEMIA [None]
  - HYPERKALAEMIA [None]
  - METABOLIC ACIDOSIS [None]
  - OVERDOSE [None]
  - RENAL FAILURE ACUTE [None]
